FAERS Safety Report 21366849 (Version 1)
Quarter: 2022Q3

REPORT INFORMATION
  Report Type: Spontaneous
  Country: US (occurrence: US)
  Receive Date: 20220923
  Receipt Date: 20220923
  Transmission Date: 20221027
  Serious: No
  Sender: FDA-Public Use
  Company Number: US-SA-SAC20220914001917

PATIENT
  Sex: Male

DRUGS (1)
  1. AVALGLUCOSIDASE ALFA [Suspect]
     Active Substance: AVALGLUCOSIDASE ALFA
     Indication: Glycogen storage disease type II

REACTIONS (6)
  - Mobility decreased [Not Recovered/Not Resolved]
  - Forced vital capacity decreased [Not Recovered/Not Resolved]
  - Urinary hexose tetrasaccharide increased [Not Recovered/Not Resolved]
  - Blood creatine phosphokinase increased [Not Recovered/Not Resolved]
  - Condition aggravated [Not Recovered/Not Resolved]
  - Drug tolerance decreased [Not Recovered/Not Resolved]

NARRATIVE: CASE EVENT DATE: 20220101
